FAERS Safety Report 4606277-1 (Version None)
Quarter: 2005Q1

REPORT INFORMATION
  Report Type: 
  Country: None (occurrence: None)
  Receive Date: 20050311
  Receipt Date: 20050302
  Transmission Date: 20050727
  Serious: Yes (Hospitalization, Congenital Anomaly)
  Sender: FDA-Public Use
  Company Number: FR-ABBOTT-05P-056-0292652-00

PATIENT
  Sex: Male
  Weight: 1.3 kg

DRUGS (10)
  1. DEPAKENE [Suspect]
     Indication: DRUG EXPOSURE DURING PREGNANCY
  2. ETHOSUXIMIDE [Suspect]
     Indication: DRUG EXPOSURE DURING PREGNANCY
  3. TETANUS TOXOID [Concomitant]
     Indication: DRUG USE FOR UNKNOWN INDICATION
     Dates: start: 20040801, end: 20040801
  4. DIPHTHERIA VACCINE [Concomitant]
     Indication: DRUG USE FOR UNKNOWN INDICATION
     Dates: start: 20040801, end: 20040801
  5. WHOOPING COUGH VACCINATION [Concomitant]
     Indication: DRUG USE FOR UNKNOWN INDICATION
     Dates: start: 20040801, end: 20040801
  6. POLIOMYELITIS VACCINATION [Concomitant]
     Indication: DRUG USE FOR UNKNOWN INDICATION
     Dates: start: 20040801, end: 20040801
  7. STREPTOCOCCUS VACCINATION  STREPTOCOCCUS STREPTOCOCCUS VACCINATION [Concomitant]
     Indication: DRUG USE FOR UNKNOWN INDICATION
     Dates: start: 20040801, end: 20040801
  8. RESPIRATORY SYNCITIAL VIRUS VACCINATION [Concomitant]
     Indication: DRUG USE FOR UNKNOWN INDICATION
     Dates: start: 20040801, end: 20040801
  9. HAEMOPHILUS VIRUS VACCINATION [Concomitant]
     Indication: DRUG USE FOR UNKNOWN INDICATION
     Dates: start: 20040801, end: 20040801
  10. TUBERCULOSIS TUBERCULOSIS VACCINATION [Concomitant]
     Indication: DRUG USE FOR UNKNOWN INDICATION
     Dates: start: 20040801, end: 20040801

REACTIONS (13)
  - CONGENITAL CORNEAL ANOMALY [None]
  - CONGENITAL EYELID MALFORMATION [None]
  - DEVELOPMENTAL DELAY [None]
  - FACIAL DYSMORPHISM [None]
  - GAZE PALSY [None]
  - HYPOTONIA NEONATAL [None]
  - JAUNDICE [None]
  - MULTIPLE CONGENITAL ABNORMALITIES [None]
  - NEONATAL RESPIRATORY DISTRESS SYNDROME [None]
  - PATENT DUCTUS ARTERIOSUS [None]
  - RESPIRATORY DISTRESS [None]
  - TALIPES [None]
  - VIRAL INFECTION [None]
